FAERS Safety Report 4340112-4 (Version None)
Quarter: 2004Q2

REPORT INFORMATION
  Report Type: 
  Country: None (occurrence: None)
  Receive Date: 20040416
  Receipt Date: 20040416
  Transmission Date: 20050107
  Serious: Yes (Other)
  Sender: FDA-Public Use
  Company Number: None

PATIENT
  Sex: Male
  Weight: 92.9874 kg

DRUGS (1)
  1. TRAZODONE HCL [Suspect]
     Indication: NEURALGIA
     Dosage: 1 1 ORAL
     Route: 048

REACTIONS (1)
  - URTICARIA [None]
